FAERS Safety Report 7019104-2 (Version None)
Quarter: 2010Q3

REPORT INFORMATION
  Report Type: 
  Country: None (occurrence: None)
  Receive Date: 20100928
  Receipt Date: 20100923
  Transmission Date: 20110219
  Serious: Yes (Death, Hospitalization)
  Sender: FDA-Public Use
  Company Number: A0883567A

PATIENT
  Sex: Male
  Weight: 52 kg

DRUGS (3)
  1. SERETIDE [Suspect]
     Indication: BRONCHITIS
     Route: 065
  2. NIFEDIPINE [Concomitant]
     Dosage: 2TAB PER DAY
  3. CLORANA [Concomitant]
     Dosage: 1TAB PER DAY
     Route: 065

REACTIONS (1)
  - RESPIRATORY ARREST [None]
